FAERS Safety Report 5494601-X (Version None)
Quarter: 2007Q4

REPORT INFORMATION
  Report Type: 
  Country: None (occurrence: None)
  Receive Date: 20071024
  Receipt Date: 20071024
  Transmission Date: 20080405
  Serious: Yes (Disabling)
  Sender: FDA-Public Use
  Company Number: PHHO2006GB21552

PATIENT
  Age: 77 Year
  Sex: Female
  Weight: 83 kg

DRUGS (5)
  1. RAD001 VS PLACEBO [Suspect]
     Indication: BREAST CANCER
     Dosage: 10 MG, QD
     Route: 048
     Dates: start: 20061028, end: 20061110
  2. FEMARA [Suspect]
     Indication: BREAST CANCER
     Dosage: DOUBLE BLIND
     Route: 048
     Dates: start: 20061028, end: 20061115
  3. OMEPRAZOLE [Concomitant]
  4. DIHYDROCODEINE BITARTRATE INJ [Concomitant]
  5. MELOXICAM [Concomitant]

REACTIONS (7)
  - ANOREXIA [None]
  - INFLUENZA LIKE ILLNESS [None]
  - MOUTH ULCERATION [None]
  - NEUTROPENIA [None]
  - PRURITUS [None]
  - RASH [None]
  - THROMBOCYTOPENIA [None]
